FAERS Safety Report 7565906-3 (Version None)
Quarter: 2011Q2

REPORT INFORMATION
  Report Type: 
  Country: None (occurrence: None)
  Receive Date: 20110623
  Receipt Date: 20110610
  Transmission Date: 20111010
  Serious: Yes (Hospitalization, Other)
  Sender: FDA-Public Use
  Company Number: IT-ELI_LILLY_AND_COMPANY-IT201008005321

PATIENT
  Sex: Male

DRUGS (1)
  1. ALIMTA [Suspect]
     Indication: ADENOCARCINOMA
     Dosage: 800 MG, DAILY (1/D)
     Route: 042
     Dates: start: 20100603

REACTIONS (7)
  - PLEURAL EFFUSION [None]
  - MALAISE [None]
  - CARDIOMEGALY [None]
  - PLATELET COUNT ABNORMAL [None]
  - HYPERPYREXIA [None]
  - PRODUCTIVE COUGH [None]
  - BLOOD CREATININE ABNORMAL [None]
